FAERS Safety Report 6588149-9 (Version None)
Quarter: 2010Q1

REPORT INFORMATION
  Report Type: 
  Country: None (occurrence: None)
  Receive Date: 20100218
  Receipt Date: 20091216
  Transmission Date: 20100710
  Serious: Yes (Congenital Anomaly)
  Sender: FDA-Public Use
  Company Number: AU-ASTRAZENECA-2009SE32262

PATIENT
  Age: 4 Month

DRUGS (4)
  1. ATACAND [Suspect]
     Route: 064
  2. ELEVIT RDI [Suspect]
     Route: 064
  3. INSULIN NOS [Suspect]
     Route: 064
  4. LEXAPRO [Suspect]
     Route: 064

REACTIONS (3)
  - DRUG EXPOSURE DURING PREGNANCY [None]
  - NEPHROLITHIASIS [None]
  - RENAL FAILURE [None]
